APPROVED DRUG PRODUCT: LOVENOX (PRESERVATIVE FREE)
Active Ingredient: ENOXAPARIN SODIUM
Strength: 120MG/0.8ML (150MG/ML)
Dosage Form/Route: INJECTABLE;SUBCUTANEOUS
Application: N020164 | Product #007 | TE Code: AP
Applicant: SANOFI AVENTIS US LLC
Approved: Jun 2, 2000 | RLD: Yes | RS: No | Type: RX